FAERS Safety Report 9819739 (Version 6)
Quarter: 2014Q3

REPORT INFORMATION
  Report Type: Report from Study
  Country: CA (occurrence: CA)
  Receive Date: 20140116
  Receipt Date: 20140725
  Transmission Date: 20150326
  Serious: Yes (Hospitalization, Other)
  Sender: FDA-Public Use
  Company Number: CA-ROCHE-1294912

PATIENT
  Age: 54 Year
  Sex: Female
  Weight: 22.66 kg

DRUGS (16)
  1. DEXAMETHASONE. [Concomitant]
     Active Substance: DEXAMETHASONE
     Route: 065
     Dates: start: 201402
  2. RANITIDINE [Concomitant]
     Active Substance: RANITIDINE\RANITIDINE HYDROCHLORIDE
  3. PAXIL (CANADA) [Concomitant]
     Route: 048
     Dates: start: 2005
  4. NABILONE [Concomitant]
     Active Substance: NABILONE
     Route: 065
     Dates: start: 201402
  5. TECTA [Concomitant]
     Active Substance: PANTOPRAZOLE MAGNESIUM
     Route: 065
     Dates: start: 201312
  6. ZOPICLONE [Concomitant]
     Active Substance: ZOPICLONE
     Dosage: AT BEDTIME
     Route: 048
     Dates: start: 2005
  7. DILANTIN [Concomitant]
     Active Substance: PHENYTOIN
     Route: 065
     Dates: start: 201309
  8. HALOPERIDOL. [Concomitant]
     Active Substance: HALOPERIDOL
     Route: 065
     Dates: start: 201312
  9. PERJETA [Suspect]
     Active Substance: PERTUZUMAB
     Indication: HER-2 POSITIVE BREAST CANCER
     Route: 042
     Dates: start: 20131007, end: 20131119
  10. DILAUDID [Concomitant]
     Active Substance: HYDROMORPHONE HYDROCHLORIDE
  11. ONDANSETRON [Concomitant]
     Active Substance: ONDANSETRON
     Route: 065
     Dates: start: 201312
  12. HERCEPTIN [Suspect]
     Active Substance: TRASTUZUMAB
     Indication: PRODUCT USED FOR UNKNOWN INDICATION
     Route: 065
     Dates: start: 2005, end: 2006
  13. TAXOTERE [Suspect]
     Active Substance: DOCETAXEL
     Indication: PRODUCT USED FOR UNKNOWN INDICATION
     Route: 065
  14. TYLENOL WITH CODEINE [Concomitant]
     Active Substance: ACETAMINOPHEN\CODEINE PHOSPHATE
     Route: 065
     Dates: start: 2005
  15. TOLOXIN (CANADA) [Concomitant]
     Route: 065
     Dates: start: 201309
  16. BISOPROLOL [Concomitant]
     Active Substance: BISOPROLOL
     Route: 065
     Dates: start: 201402

REACTIONS (9)
  - Weight decreased [Not Recovered/Not Resolved]
  - Condition aggravated [Unknown]
  - Nausea [Not Recovered/Not Resolved]
  - Syncope [Unknown]
  - Headache [Recovered/Resolved]
  - Breast cancer [Not Recovered/Not Resolved]
  - Cardiac output decreased [Unknown]
  - Lung disorder [Unknown]
  - Diarrhoea [Not Recovered/Not Resolved]

NARRATIVE: CASE EVENT DATE: 2006
